FAERS Safety Report 17551246 (Version 2)
Quarter: 2020Q2

REPORT INFORMATION
  Report Type: Spontaneous
  Country: US (occurrence: US)
  Receive Date: 20200317
  Receipt Date: 20200417
  Transmission Date: 20200713
  Serious: No
  Sender: FDA-Public Use
  Company Number: US-TEVA-2020-US-1200408

PATIENT
  Sex: Female

DRUGS (2)
  1. NIACIN ER TEVA [Interacting]
     Active Substance: NIACIN
     Dosage: 1.5 GRAM DAILY;
     Route: 065
  2. NIACIN ER TEVA [Suspect]
     Active Substance: NIACIN
     Indication: HYPERCHOLESTEROLAEMIA
     Dosage: 1 GRAM DAILY; FOR ABOUT ONE YEAR
     Route: 065

REACTIONS (5)
  - Drug interaction [Recovered/Resolved]
  - Nausea [Recovered/Resolved]
  - Liver function test increased [Recovered/Resolved]
  - Vomiting [Recovered/Resolved]
  - Fatigue [Recovered/Resolved]
